FAERS Safety Report 9799993 (Version 3)
Quarter: 2015Q3

REPORT INFORMATION
  Report Type: Spontaneous
  Country: US (occurrence: US)
  Receive Date: 20140106
  Receipt Date: 20150806
  Transmission Date: 20151125
  Serious: Yes (Hospitalization)
  Sender: FDA-Public Use
  Company Number: US-GILEAD-2010-0030463

PATIENT
  Age: 58 Year
  Sex: Female

DRUGS (14)
  1. LETAIRIS [Suspect]
     Active Substance: AMBRISENTAN
     Indication: PULMONARY ARTERIAL HYPERTENSION
     Route: 048
     Dates: start: 20100618
  2. LIDODERM [Concomitant]
     Active Substance: LIDOCAINE
  3. REVATIO [Concomitant]
     Active Substance: SILDENAFIL CITRATE
  4. LASIX [Concomitant]
     Active Substance: FUROSEMIDE
  5. ZOCOR [Concomitant]
     Active Substance: SIMVASTATIN
  6. MICARDIS [Concomitant]
     Active Substance: TELMISARTAN
  7. TRAZODONE [Concomitant]
     Active Substance: TRAZODONE HYDROCHLORIDE
  8. PRILOSEC [Concomitant]
     Active Substance: OMEPRAZOLE MAGNESIUM
  9. METOPROLOL [Concomitant]
     Active Substance: METOPROLOL
  10. LYRICA [Concomitant]
     Active Substance: PREGABALIN
  11. FISH OIL [Concomitant]
     Active Substance: FISH OIL
  12. FOSAMAX [Concomitant]
     Active Substance: ALENDRONATE SODIUM
  13. CELEBREX [Concomitant]
     Active Substance: CELECOXIB
  14. ULTRAM [Concomitant]
     Active Substance: TRAMADOL HYDROCHLORIDE

REACTIONS (3)
  - Oedema [Recovered/Resolved]
  - Swelling face [Recovered/Resolved]
  - Fluid retention [Recovered/Resolved]

NARRATIVE: CASE EVENT DATE: 20100712
